FAERS Safety Report 16931838 (Version 1)
Quarter: 2019Q4

REPORT INFORMATION
  Report Type: Spontaneous
  Country: US (occurrence: US)
  Receive Date: 20191017
  Receipt Date: 20191017
  Transmission Date: 20200122
  Serious: Yes (Hospitalization)
  Sender: FDA-Public Use
  Company Number: US-JUBILANT CADISTA PHARMACEUTICALS-2019JUB00387

PATIENT
  Age: 74 Year
  Sex: Male

DRUGS (2)
  1. SUPPLEMENTARY OXYGEN [Concomitant]
  2. PREDNISONE. [Suspect]
     Active Substance: PREDNISONE
     Dosage: 20 MG, 1X/DAY
     Route: 065

REACTIONS (4)
  - Pulmonary cavitation [Unknown]
  - Immunosuppression [Unknown]
  - Pneumonia [Recovering/Resolving]
  - Mycobacterium abscessus infection [Recovering/Resolving]
